FAERS Safety Report 19019304 (Version 1)
Quarter: 2021Q1

REPORT INFORMATION
  Report Type: Report from Study
  Country: US (occurrence: US)
  Receive Date: 20210316
  Receipt Date: 20210316
  Transmission Date: 20210420
  Serious: Yes (Other)
  Sender: FDA-Public Use
  Company Number: US-JAZZ-2021-US-004575

PATIENT
  Sex: Female

DRUGS (3)
  1. XYREM [Suspect]
     Active Substance: SODIUM OXYBATE
     Dosage: 4.5 GRAM, BID
     Route: 048
     Dates: start: 200708, end: 202005
  2. XYREM [Suspect]
     Active Substance: SODIUM OXYBATE
     Indication: CATAPLEXY
     Dosage: 3.75 GRAM, BID
     Route: 048
     Dates: start: 200612, end: 200708
  3. XYREM [Suspect]
     Active Substance: SODIUM OXYBATE
     Indication: NARCOLEPSY
     Dosage: 3 GRAM, BID
     Route: 048
     Dates: start: 200609, end: 200611

REACTIONS (9)
  - Abdominoplasty [Unknown]
  - Mammoplasty [Unknown]
  - Pituitary tumour [Not Recovered/Not Resolved]
  - Hunger [Unknown]
  - Product preparation error [Unknown]
  - Calcinosis [Unknown]
  - Tremor [Unknown]
  - Carpal tunnel syndrome [Unknown]
  - Product storage error [Unknown]
